FAERS Safety Report 4479250-4 (Version None)
Quarter: 2004Q4

REPORT INFORMATION
  Report Type: 
  Country: None (occurrence: None)
  Receive Date: 20041015
  Receipt Date: 20041006
  Transmission Date: 20050328
  Serious: Yes (Other)
  Sender: FDA-Public Use
  Company Number: K200401511

PATIENT
  Age: 67 Year
  Sex: Male

DRUGS (2)
  1. LEVOXYL [Suspect]
     Indication: HYPOTHYROIDISM
     Dosage: QD, ORAL
     Route: 048
     Dates: start: 20010101
  2. ACETYLSALICYLIC ACID SRT [Concomitant]

REACTIONS (2)
  - CHOKING [None]
  - RETCHING [None]
